FAERS Safety Report 9321789 (Version 2)
Quarter: 2014Q1

REPORT INFORMATION
  Report Type: Spontaneous
  Country: FR (occurrence: FR)
  Receive Date: 20130531
  Receipt Date: 20140310
  Transmission Date: 20141002
  Serious: Yes (Other)
  Sender: FDA-Public Use
  Company Number: FR-009507513-1305FRA013513

PATIENT
  Sex: Female
  Weight: 65 kg

DRUGS (1)
  1. MK-8415 [Suspect]
     Indication: PRODUCT USED FOR UNKNOWN INDICATION
     Dosage: UNK
     Route: 059
     Dates: start: 2011

REACTIONS (2)
  - Abortion spontaneous [Unknown]
  - Unintended pregnancy [Not Recovered/Not Resolved]
